FAERS Safety Report 6980327-X (Version None)
Quarter: 2010Q3

REPORT INFORMATION
  Report Type: 
  Country: None (occurrence: None)
  Receive Date: 20100914
  Receipt Date: 20100903
  Transmission Date: 20110219
  Serious: Yes (Hospitalization)
  Sender: FDA-Public Use
  Company Number: DE-ROCHE-726445

PATIENT
  Sex: Male
  Weight: 106 kg

DRUGS (2)
  1. PEGINTERFERON ALFA-2A [Suspect]
     Route: 058
     Dates: start: 20100304
  2. RIBAVIRIN [Concomitant]
     Route: 048
     Dates: start: 20100304

REACTIONS (2)
  - ABSCESS [None]
  - ACCIDENT [None]
